FAERS Safety Report 6853157-7 (Version None)
Quarter: 2010Q3

REPORT INFORMATION
  Report Type: 
  Country: None (occurrence: None)
  Receive Date: 20100717
  Receipt Date: 20071128
  Transmission Date: 20110219
  Serious: Yes (Other)
  Sender: FDA-Public Use
  Company Number: US-PFIZER INC-2007103066

PATIENT
  Age: 45 Year
  Sex: Female

DRUGS (2)
  1. CHANTIX [Suspect]
     Dates: start: 20070101
  2. SSRI [Concomitant]

REACTIONS (1)
  - HALLUCINATION [None]
